FAERS Safety Report 18797985 (Version 2)
Quarter: 2021Q1

REPORT INFORMATION
  Report Type: Spontaneous
  Country: JP (occurrence: JP)
  Receive Date: 20210128
  Receipt Date: 20210226
  Transmission Date: 20210419
  Serious: Yes (Other)
  Sender: FDA-Public Use
  Company Number: JP-TEVA-2021-JP-000370J

PATIENT
  Age: 56 Year
  Sex: Female

DRUGS (3)
  1. HYTHIOL [Concomitant]
     Indication: PALMOPLANTAR PUSTULOSIS
     Dosage: 160 MILLIGRAM DAILY;
     Route: 048
     Dates: start: 20201201
  2. LEVOCETIRIZINE HCL TAB. 5MG TAKEDA TEVA [Suspect]
     Active Substance: LEVOCETIRIZINE HYDROCHLORIDE
     Indication: PALMOPLANTAR PUSTULOSIS
     Dosage: 5 MILLIGRAM DAILY;
     Route: 048
     Dates: start: 20201201, end: 20201214
  3. BIOTIN [Concomitant]
     Active Substance: BIOTIN
     Indication: PALMOPLANTAR PUSTULOSIS
     Dosage: 1 MILLIGRAM DAILY;
     Route: 048
     Dates: start: 20201201

REACTIONS (2)
  - Erythema multiforme [Recovering/Resolving]
  - Product use in unapproved indication [Unknown]

NARRATIVE: CASE EVENT DATE: 20201214
